FAERS Safety Report 18386203 (Version 1)
Quarter: 2020Q4

REPORT INFORMATION
  Report Type: Spontaneous
  Country: CN (occurrence: CN)
  Receive Date: 20201015
  Receipt Date: 20201015
  Transmission Date: 20210114
  Serious: Yes (Life-Threatening, Hospitalization, Disabling, Other)
  Sender: FDA-Public Use
  Company Number: CN-ALS-000107

PATIENT
  Age: 14 Year
  Sex: Female

DRUGS (1)
  1. METFORMIN [Suspect]
     Active Substance: METFORMIN HYDROCHLORIDE
     Indication: SUICIDE ATTEMPT
     Route: 065

REACTIONS (6)
  - Central nervous system necrosis [Not Recovered/Not Resolved]
  - Coma [Not Recovered/Not Resolved]
  - Drug level above therapeutic [Not Recovered/Not Resolved]
  - Intentional overdose [Not Recovered/Not Resolved]
  - Hypoglycaemic encephalopathy [Not Recovered/Not Resolved]
  - Suicide attempt [Not Recovered/Not Resolved]
